FAERS Safety Report 4315150-8 (Version None)
Quarter: 2004Q1

REPORT INFORMATION
  Report Type: 
  Country: None (occurrence: None)
  Receive Date: 20040309
  Receipt Date: 20040226
  Transmission Date: 20041129
  Serious: Yes (Life-Threatening)
  Sender: FDA-Public Use
  Company Number: GB-JNJFOC-20040205886

PATIENT
  Age: 42 Year
  Sex: Female

DRUGS (8)
  1. REMICADE [Suspect]
     Indication: RHEUMATOID ARTHRITIS
     Dosage: 200 MG, INTRAVENOUS
     Route: 042
     Dates: start: 20020709, end: 20031021
  2. METHOTREXATE [Concomitant]
  3. FOLIC ACID [Concomitant]
  4. INDOMETHACIN [Concomitant]
  5. PREDNISOLONE [Concomitant]
  6. CO-PROXAMOL (APOREX) [Concomitant]
  7. LANSOPRAZOLE [Concomitant]
  8. ORAL CONTRACEPTIVE (ORAL CONTRACEPTIVE) [Concomitant]

REACTIONS (4)
  - INFUSION RELATED REACTION [None]
  - JOINT SWELLING [None]
  - PERIPHERAL COLDNESS [None]
  - URTICARIA [None]
